FAERS Safety Report 4606983-9 (Version None)
Quarter: 2005Q1

REPORT INFORMATION
  Report Type: 
  Country: None (occurrence: None)
  Receive Date: 20050309
  Receipt Date: 20050224
  Transmission Date: 20050727
  Serious: Yes (Hospitalization)
  Sender: FDA-Public Use
  Company Number: 2004120897

PATIENT
  Age: 21 Year
  Sex: Female

DRUGS (1)
  1. GEODON [Suspect]
     Indication: PARANOIA
     Dosage: 40 MG (1 D), ORAL
     Route: 048
     Dates: start: 20041124, end: 20041209

REACTIONS (4)
  - DIZZINESS [None]
  - ELECTROCARDIOGRAM QT CORRECTED INTERVAL PROLONGED [None]
  - PLATELET COUNT DECREASED [None]
  - SYNCOPE [None]
